FAERS Safety Report 9073817 (Version 1)
Quarter: 2013Q1

REPORT INFORMATION
  Report Type: Report from Study
  Country: US (occurrence: US)
  Receive Date: 20130129
  Receipt Date: 20130129
  Transmission Date: 20140127
  Serious: No
  Sender: FDA-Public Use
  Company Number: US-ABBOTT-12P-163-0899795-00

PATIENT
  Age: 50 Year
  Sex: Female

DRUGS (4)
  1. HUMIRA 40 MG/0.8 ML PEN [Suspect]
     Indication: CROHN^S DISEASE
     Dates: start: 20111214, end: 20120111
  2. HUMIRA 40 MG/0.8 ML PEN [Suspect]
     Dates: start: 20120328, end: 20120328
  3. HUMIRA 40 MG/0.8 ML PEN [Suspect]
  4. IRON [Concomitant]
     Indication: PRODUCT USED FOR UNKNOWN INDICATION

REACTIONS (8)
  - Vaginal haemorrhage [Not Recovered/Not Resolved]
  - Vaginal discharge [Not Recovered/Not Resolved]
  - Vaginal discharge [Not Recovered/Not Resolved]
  - Vaginal infection [None]
  - Crohn^s disease [Not Recovered/Not Resolved]
  - Wound [Not Recovered/Not Resolved]
  - Vaginal infection [Not Recovered/Not Resolved]
  - Wound [Not Recovered/Not Resolved]
